FAERS Safety Report 25223273 (Version 2)
Quarter: 2025Q2

REPORT INFORMATION
  Report Type: Spontaneous
  Country: US (occurrence: US)
  Receive Date: 20250422
  Receipt Date: 20250522
  Transmission Date: 20250717
  Serious: No
  Sender: DR REDDYS
  Company Number: US-DRL-USA-USA/2025/03/004845

PATIENT
  Sex: Female

DRUGS (6)
  1. ICOSAPENT ETHYL [Suspect]
     Active Substance: ICOSAPENT ETHYL
     Indication: Product used for unknown indication
     Route: 065
  2. ICOSAPENT ETHYL [Suspect]
     Active Substance: ICOSAPENT ETHYL
     Route: 065
  3. ICOSAPENT ETHYL [Suspect]
     Active Substance: ICOSAPENT ETHYL
     Route: 065
  4. ICOSAPENT ETHYL [Suspect]
     Active Substance: ICOSAPENT ETHYL
     Route: 065
  5. ICOSAPENT ETHYL [Suspect]
     Active Substance: ICOSAPENT ETHYL
     Route: 065
  6. ICOSAPENT ETHYL [Suspect]
     Active Substance: ICOSAPENT ETHYL
     Route: 065

REACTIONS (2)
  - Product physical issue [Unknown]
  - Product use issue [Unknown]
